FAERS Safety Report 15111070 (Version 1)
Quarter: 2018Q3

REPORT INFORMATION
  Report Type: Spontaneous
  Country: US (occurrence: US)
  Receive Date: 20180705
  Receipt Date: 20180705
  Transmission Date: 20181010
  Serious: Yes (Hospitalization)
  Sender: FDA-Public Use
  Company Number: US-JNJFOC-20180701374

PATIENT
  Age: 47 Year
  Sex: Female
  Weight: 85.64 kg

DRUGS (4)
  1. ATIVAN [Concomitant]
     Active Substance: LORAZEPAM
     Route: 048
  2. SIMPONI [Suspect]
     Active Substance: GOLIMUMAB
     Indication: COLITIS ULCERATIVE
     Route: 058
     Dates: start: 201802
  3. METOPROLOL. [Concomitant]
     Active Substance: METOPROLOL
     Indication: MITRAL VALVE INCOMPETENCE
     Route: 048
  4. TRAMADOL. [Concomitant]
     Active Substance: TRAMADOL
     Indication: PAIN
     Dosage: ONE OR TWO AS NEEDED??50 MG/ EVERY SIX HOURS AS NEEDED
     Route: 048

REACTIONS (1)
  - Menorrhagia [Not Recovered/Not Resolved]

NARRATIVE: CASE EVENT DATE: 201805
